FAERS Safety Report 6303470-7 (Version None)
Quarter: 2009Q3

REPORT INFORMATION
  Report Type: 
  Country: None (occurrence: None)
  Receive Date: 20090810
  Receipt Date: 20090730
  Transmission Date: 20100115
  Serious: Yes (Hospitalization, Other)
  Sender: FDA-Public Use
  Company Number: PHEH2009US08485

PATIENT
  Sex: Male

DRUGS (1)
  1. GLEEVEC [Suspect]
     Indication: GASTROINTESTINAL STROMAL TUMOUR
     Dosage: 800 MG, QD
     Route: 048
     Dates: start: 20090216

REACTIONS (5)
  - BIOPSY LUNG [None]
  - FLUID RETENTION [None]
  - MESOTHELIOMA [None]
  - PLEURAL EFFUSION [None]
  - SURGERY [None]
